FAERS Safety Report 11598065 (Version 2)
Quarter: 2016Q2

REPORT INFORMATION
  Report Type: Spontaneous
  Country: US (occurrence: US)
  Receive Date: 20151006
  Receipt Date: 20160405
  Transmission Date: 20160815
  Serious: No
  Sender: FDA-Public Use
  Company Number: US-ROCHE-1614932

PATIENT
  Sex: Male

DRUGS (9)
  1. GABAPENTIN. [Concomitant]
     Active Substance: GABAPENTIN
  2. IPRATROPIUM BROMIDE. [Concomitant]
     Active Substance: IPRATROPIUM BROMIDE
  3. PRIMIDONE. [Concomitant]
     Active Substance: PRIMIDONE
  4. LATANOPROST. [Concomitant]
     Active Substance: LATANOPROST
  5. BUDESONIDE. [Concomitant]
     Active Substance: BUDESONIDE
  6. RESTASIS [Concomitant]
     Active Substance: CYCLOSPORINE
  7. SYSTANE (UNITED STATES) [Concomitant]
  8. ERIVEDGE [Suspect]
     Active Substance: VISMODEGIB
     Indication: BASAL CELL CARCINOMA
     Route: 048
  9. PREDNISONE. [Concomitant]
     Active Substance: PREDNISONE

REACTIONS (3)
  - Asthenia [Unknown]
  - Fatigue [Unknown]
  - Muscular weakness [Unknown]
